FAERS Safety Report 5568904-4 (Version None)
Quarter: 2007Q4

REPORT INFORMATION
  Report Type: 
  Country: None (occurrence: None)
  Receive Date: 20071220
  Receipt Date: 20070403
  Transmission Date: 20080405
  Serious: No
  Sender: FDA-Public Use
  Company Number: A0643254A

PATIENT
  Age: 88 Year
  Sex: Male

DRUGS (6)
  1. AVODART [Suspect]
     Indication: PROSTATIC DISORDER
     Dosage: .5MG PER DAY
     Route: 048
     Dates: start: 20060101, end: 20070101
  2. CIPROFLOXACIN HCL [Concomitant]
  3. AMINOCAPROIC SYRUP [Concomitant]
  4. METFORMIN HCL [Concomitant]
  5. FLU SHOT [Concomitant]
     Dates: start: 20061001
  6. LEVOTHYROXINE SODIUM [Concomitant]

REACTIONS (1)
  - DRUG INEFFECTIVE [None]
